FAERS Safety Report 17588863 (Version 4)
Quarter: 2020Q4

REPORT INFORMATION
  Report Type: Report from Study
  Country: None (occurrence: US)
  Receive Date: 20200327
  Receipt Date: 20201114
  Transmission Date: 20210113
  Serious: Yes (Other)
  Sender: FDA-Public Use
  Company Number: US-ABBVIE-19K-163-2849795-00

PATIENT
  Sex: Female

DRUGS (4)
  1. HUMIRA [Suspect]
     Active Substance: ADALIMUMAB
     Indication: RHEUMATOID ARTHRITIS
     Route: 058
  2. HUMIRA [Suspect]
     Active Substance: ADALIMUMAB
     Route: 058
  3. HUMIRA [Suspect]
     Active Substance: ADALIMUMAB
     Route: 058
  4. HUMIRA [Suspect]
     Active Substance: ADALIMUMAB
     Route: 058

REACTIONS (14)
  - Bronchitis [Unknown]
  - Nausea [Unknown]
  - Decreased appetite [Unknown]
  - Hiatus hernia [Unknown]
  - Diabetic neuropathy [Unknown]
  - Arthralgia [Unknown]
  - Hernia [Unknown]
  - Upper respiratory tract infection [Unknown]
  - Chest discomfort [Unknown]
  - Dizziness [Unknown]
  - Umbilical hernia [Unknown]
  - Gastritis [Unknown]
  - Fatigue [Unknown]
  - Abdominal discomfort [Unknown]
